FAERS Safety Report 12572411 (Version 3)
Quarter: 2016Q3

REPORT INFORMATION
  Report Type: Spontaneous
  Country: BR (occurrence: BR)
  Receive Date: 20160719
  Receipt Date: 20160803
  Transmission Date: 20161109
  Serious: Yes (Other)
  Sender: FDA-Public Use
  Company Number: BR-LUNDBECK-DKLU2016633

PATIENT
  Age: 21 Year
  Sex: Male

DRUGS (5)
  1. URBANIL [Suspect]
     Active Substance: CLOBAZAM
     Indication: SEIZURE
     Route: 048
  2. LAMOTRIGINE. [Concomitant]
     Active Substance: LAMOTRIGINE
     Indication: PRODUCT USED FOR UNKNOWN INDICATION
     Route: 065
  3. CARBAMAZEPINE. [Concomitant]
     Active Substance: CARBAMAZEPINE
     Indication: PRODUCT USED FOR UNKNOWN INDICATION
     Route: 065
  4. URBANIL [Suspect]
     Active Substance: CLOBAZAM
     Indication: TUBEROUS SCLEROSIS
     Route: 048
     Dates: start: 20160706
  5. URBANIL [Suspect]
     Active Substance: CLOBAZAM
     Indication: NERVOUS SYSTEM DISORDER
     Route: 048
     Dates: start: 20160701, end: 20160705

REACTIONS (2)
  - Nervous system disorder [Recovered/Resolved]
  - Seizure [Recovered/Resolved]

NARRATIVE: CASE EVENT DATE: 201607
